FAERS Safety Report 7408011-9 (Version None)
Quarter: 2011Q2

REPORT INFORMATION
  Report Type: 
  Country: None (occurrence: None)
  Receive Date: 20110412
  Receipt Date: 20110407
  Transmission Date: 20111010
  Serious: No
  Sender: FDA-Public Use
  Company Number: US-PFIZER INC-2011035929

PATIENT
  Sex: Male

DRUGS (1)
  1. DEPO-TESTOSTERONE [Suspect]
     Dosage: UNK
     Route: 030

REACTIONS (2)
  - INJECTION SITE PAIN [None]
  - POOR QUALITY DRUG ADMINISTERED [None]
